FAERS Safety Report 4646899-5 (Version None)
Quarter: 2005Q2

REPORT INFORMATION
  Report Type: 
  Country: None (occurrence: None)
  Receive Date: 20050427
  Receipt Date: 20050419
  Transmission Date: 20051028
  Serious: Yes (Hospitalization)
  Sender: FDA-Public Use
  Company Number: NO-MERCK-0504NOR00028

PATIENT
  Age: 35 Year
  Sex: Female

DRUGS (2)
  1. SINGULAIR [Suspect]
     Indication: ASTHMA
     Route: 048
     Dates: start: 20010801, end: 20030701
  2. DESLORATADINE [Concomitant]
     Indication: ASTHMA
     Route: 048
     Dates: start: 20010815

REACTIONS (1)
  - ALLERGIC GRANULOMATOUS ANGIITIS [None]
